FAERS Safety Report 8296619-0 (Version None)
Quarter: 2012Q2

REPORT INFORMATION
  Report Type: 
  Country: None (occurrence: None)
  Receive Date: 20120418
  Receipt Date: 20120418
  Transmission Date: 20120825
  Serious: Yes (Other)
  Sender: FDA-Public Use
  Company Number: None

PATIENT
  Age: 52 Year
  Weight: 65.77 kg

DRUGS (1)
  1. VIGAMOX [Suspect]
     Indication: CONJUNCTIVITIS INFECTIVE
     Dosage: 1 DROP
     Route: 047
     Dates: start: 20120414, end: 20120416

REACTIONS (1)
  - DRUG HYPERSENSITIVITY [None]
